FAERS Safety Report 19101108 (Version 1)
Quarter: 2021Q2

REPORT INFORMATION
  Report Type: Spontaneous
  Country: CN (occurrence: CN)
  Receive Date: 20210407
  Receipt Date: 20210407
  Transmission Date: 20210717
  Serious: Yes (Hospitalization)
  Sender: FDA-Public Use
  Company Number: CN-B.I. PHARMACEUTICALS,INC./RIDGEFIELD-2021-BI-089184

PATIENT
  Age: 62 Year
  Sex: Female
  Weight: 65 kg

DRUGS (2)
  1. SIFROL [Suspect]
     Active Substance: PRAMIPEXOLE
     Indication: PARKINSON^S DISEASE
     Route: 048
     Dates: start: 20210204, end: 20210210
  2. SIFROL [Suspect]
     Active Substance: PRAMIPEXOLE
     Dosage: REDUCED TO HALF TABLET TID
     Route: 048

REACTIONS (4)
  - Irritability [Recovering/Resolving]
  - Hallucination, auditory [Recovering/Resolving]
  - Hallucination [Recovering/Resolving]
  - Delusion [Recovering/Resolving]

NARRATIVE: CASE EVENT DATE: 20210210
